FAERS Safety Report 17929704 (Version 3)
Quarter: 2020Q3

REPORT INFORMATION
  Report Type: Spontaneous
  Country: US (occurrence: US)
  Receive Date: 20200623
  Receipt Date: 20200831
  Transmission Date: 20201103
  Serious: No
  Sender: FDA-Public Use
  Company Number: US-PFIZER INC-2020241342

PATIENT
  Age: 71 Year
  Sex: Female
  Weight: 57.6 kg

DRUGS (4)
  1. XGEVA [Concomitant]
     Active Substance: DENOSUMAB
     Dosage: 120 MG
  2. LETROZOLE. [Concomitant]
     Active Substance: LETROZOLE
     Dosage: 2.5 MG
  3. DICLOFENAC SODIUM. [Concomitant]
     Active Substance: DICLOFENAC SODIUM
     Dosage: UNK
  4. IBRANCE [Suspect]
     Active Substance: PALBOCICLIB
     Indication: BREAST CANCER FEMALE
     Dosage: 75 MG, CYCLIC(DAILY FOR 21 DAYS, THEN OFF 7 DAYS)/ TAKE 1 TABLET ONCE A DAY
     Route: 048
     Dates: start: 20200328

REACTIONS (5)
  - Alopecia [Recovering/Resolving]
  - Blood count abnormal [Unknown]
  - Taste disorder [Not Recovered/Not Resolved]
  - Oral candidiasis [Recovering/Resolving]
  - Nausea [Not Recovered/Not Resolved]

NARRATIVE: CASE EVENT DATE: 20200616
